FAERS Safety Report 10185993 (Version 3)
Quarter: 2014Q2

REPORT INFORMATION
  Report Type: Spontaneous
  Country: US (occurrence: US)
  Receive Date: 20140521
  Receipt Date: 20140616
  Transmission Date: 20141212
  Serious: No
  Sender: FDA-Public Use
  Company Number: US-TEVA-483210USA

PATIENT
  Age: 19 Year
  Sex: Female
  Weight: 90.8 kg

DRUGS (2)
  1. PLAN B ONE-STEP [Suspect]
     Indication: POST COITAL CONTRACEPTION
     Dosage: 1.5 MILLIGRAM DAILY;
     Route: 048
     Dates: start: 20140503, end: 20140503
  2. PARAGARD T380A [Concomitant]
     Indication: CONTRACEPTION
     Route: 015
     Dates: start: 2012, end: 20140428

REACTIONS (5)
  - Vaginal discharge [Recovered/Resolved]
  - Dysuria [Recovered/Resolved]
  - Abdominal discomfort [Recovered/Resolved]
  - Menstruation irregular [Recovered/Resolved]
  - Dysmenorrhoea [Recovered/Resolved]
